FAERS Safety Report 14413119 (Version 1)
Quarter: 2018Q1

REPORT INFORMATION
  Report Type: Other
  Country: FR (occurrence: FR)
  Receive Date: 20180119
  Receipt Date: 20180119
  Transmission Date: 20180509
  Serious: Yes (Death)
  Sender: FDA-Public Use
  Company Number: FR-VALIDUS PHARMACEUTICALS LLC-FR-2018VAL000138

PATIENT
  Age: 55 Year
  Sex: Male

DRUGS (4)
  1. AERIUS [Suspect]
     Active Substance: DESLORATADINE
     Indication: PRODUCT USED FOR UNKNOWN INDICATION
     Dosage: 5 MG, QD
     Route: 048
     Dates: end: 20171227
  2. CORGARD [Suspect]
     Active Substance: NADOLOL
     Indication: TACHYCARDIA
     Dosage: 40 MG, QD
     Route: 048
     Dates: start: 20171226, end: 20171226
  3. CORDARONE [Suspect]
     Active Substance: AMIODARONE HYDROCHLORIDE
     Indication: ARRHYTHMIA
     Dosage: 200 MG, QD
     Route: 048
     Dates: start: 20171222, end: 20171226
  4. FUROSEMIDE. [Suspect]
     Active Substance: FUROSEMIDE
     Indication: CARDIAC FAILURE
     Dosage: 40 MG, QD
     Route: 048
     Dates: end: 20171227

REACTIONS (3)
  - Hypokalaemia [Fatal]
  - Bradycardia [Fatal]
  - Torsade de pointes [Fatal]

NARRATIVE: CASE EVENT DATE: 20171226
